FAERS Safety Report 24743516 (Version 1)
Quarter: 2024Q4

REPORT INFORMATION
  Report Type: Spontaneous
  Country: US (occurrence: None)
  Receive Date: 20241217
  Receipt Date: 20241217
  Transmission Date: 20250114
  Serious: Yes (Hospitalization)
  Sender: Public
  Company Number: None

PATIENT
  Sex: Female

DRUGS (11)
  1. LENALIDOMIDE [Suspect]
     Active Substance: LENALIDOMIDE
     Indication: Plasma cell myeloma
     Dates: start: 20241116
  2. ACETAMIN TAB 500MG [Concomitant]
  3. ALBUTEROL AER HFA [Concomitant]
  4. CALTRATE+D TAB 600-800 [Concomitant]
  5. COQ10 CAP 100MG [Concomitant]
  6. DARZALEX SOL FASPRO [Concomitant]
  7. DEXAMETHASONE [Concomitant]
     Active Substance: DEXAMETHASONE
  8. EPINEPHRINE INJ 0.3MG [Concomitant]
  9. FEXOFENADINE HYDROCHLORIDE [Concomitant]
     Active Substance: FEXOFENADINE HYDROCHLORIDE
  10. FLUTICASONE [Concomitant]
     Active Substance: FLUTICASONE
  11. FLUTICASONE [Concomitant]
     Active Substance: FLUTICASONE

REACTIONS (1)
  - Pneumonia [None]
